FAERS Safety Report 4294829-0 (Version None)
Quarter: 2004Q1

REPORT INFORMATION
  Report Type: 
  Country: None (occurrence: None)
  Receive Date: 20040216
  Receipt Date: 20030115
  Transmission Date: 20041129
  Serious: No
  Sender: FDA-Public Use
  Company Number: US-GLAXOSMITHKLINE-A0392598A

PATIENT
  Age: 31 Year
  Sex: Male

DRUGS (4)
  1. LAMICTAL [Suspect]
     Indication: BIPOLAR DISORDER
     Dosage: 450MG PER DAY
     Route: 048
  2. WELLBUTRIN [Concomitant]
     Route: 048
  3. PAXIL [Concomitant]
  4. ADDERALL 10 [Concomitant]

REACTIONS (5)
  - ABNORMAL BEHAVIOUR [None]
  - DISORIENTATION [None]
  - ILL-DEFINED DISORDER [None]
  - PARAESTHESIA [None]
  - THINKING ABNORMAL [None]
